FAERS Safety Report 24562066 (Version 7)
Quarter: 2025Q1

REPORT INFORMATION
  Report Type: Spontaneous
  Country: JP (occurrence: JP)
  Receive Date: 20241029
  Receipt Date: 20250205
  Transmission Date: 20250408
  Serious: Yes (Life-Threatening, Hospitalization, Disabling, Other)
  Sender: BRISTOL-MYERS SQUIBB COMPANY
  Company Number: JP-ONO-2024JP021984

PATIENT
  Age: 83 Year
  Sex: Male

DRUGS (3)
  1. OPDIVO [Suspect]
     Active Substance: NIVOLUMAB
     Indication: Gastric neuroendocrine carcinoma
     Route: 041
     Dates: start: 202409
  2. GIMERACIL\OTERACIL\TEGAFUR [Suspect]
     Active Substance: GIMERACIL\OTERACIL POTASSIUM\TEGAFUR
     Indication: Gastric neuroendocrine carcinoma
     Dates: start: 202409
  3. OXALIPLATIN [Suspect]
     Active Substance: OXALIPLATIN
     Indication: Gastric neuroendocrine carcinoma
     Dates: start: 202409

REACTIONS (11)
  - Vomiting [Recovered/Resolved]
  - Eyelid ptosis [Not Recovered/Not Resolved]
  - Immune-mediated myocarditis [Recovering/Resolving]
  - Respiratory failure [Unknown]
  - Immune-mediated myositis [Unknown]
  - Antiacetylcholine receptor antibody positive [Unknown]
  - Off label use [Unknown]
  - Atrioventricular block complete [Recovering/Resolving]
  - Cardiac arrest [Recovering/Resolving]
  - Immune-mediated hepatic disorder [Unknown]
  - Weight increased [Unknown]

NARRATIVE: CASE EVENT DATE: 20241024
